FAERS Safety Report 19660008 (Version 1)
Quarter: 2021Q3

REPORT INFORMATION
  Report Type: Spontaneous
  Country: IT (occurrence: IT)
  Receive Date: 20210805
  Receipt Date: 20210805
  Transmission Date: 20211014
  Serious: Yes (Hospitalization)
  Sender: FDA-Public Use
  Company Number: IT-STRIDES ARCOLAB LIMITED-2021SP025984

PATIENT
  Age: 62 Year
  Sex: Female

DRUGS (1)
  1. ACETAZOLAMIDE. [Suspect]
     Active Substance: ACETAZOLAMIDE
     Indication: PRODUCT USED FOR UNKNOWN INDICATION
     Dosage: 1 GRAM PER DAY, STARTED ONE MONTH BEFORE THE ONSET OF THE MOST RECENT CUTANEOUS LESIONS
     Route: 065

REACTIONS (2)
  - Disease recurrence [Recovered/Resolved]
  - Pemphigoid [Recovered/Resolved]
